FAERS Safety Report 5736573-6 (Version None)
Quarter: 2008Q2

REPORT INFORMATION
  Report Type: 
  Country: None (occurrence: None)
  Receive Date: 20080513
  Receipt Date: 20080507
  Transmission Date: 20081010
  Serious: Yes (Death, Life-Threatening, Hospitalization)
  Sender: FDA-Public Use
  Company Number: ZA-GENENTECH-255713

PATIENT
  Sex: Female

DRUGS (1)
  1. ACTIVASE [Suspect]
     Indication: CEREBROVASCULAR ACCIDENT
     Dosage: 90 MG, UNK
     Route: 042
     Dates: start: 20071205

REACTIONS (1)
  - HAEMORRHAGE INTRACRANIAL [None]
